FAERS Safety Report 6394345-6 (Version None)
Quarter: 2009Q4

REPORT INFORMATION
  Report Type: 
  Country: None (occurrence: None)
  Receive Date: 20091006
  Receipt Date: 20090923
  Transmission Date: 20100525
  Serious: Yes (Hospitalization)
  Sender: FDA-Public Use
  Company Number: 2009-03703

PATIENT
  Age: 75 Year
  Sex: Male
  Weight: 69 kg

DRUGS (10)
  1. VELCADE [Suspect]
     Indication: MULTIPLE MYELOMA
     Dosage: 2.8 MG, INTRAVENOUS
     Route: 042
     Dates: start: 20090820, end: 20090903
  2. LENALIDOMIDE           (LENALIDOMIDE) CAPSULE [Suspect]
     Indication: MULTIPLE MYELOMA
     Dosage: 15 MG, ORAL
     Route: 048
     Dates: start: 20090820, end: 20090906
  3. DEXAMETHASONE [Concomitant]
  4. ASCAL CARDIO (CARBASALATE CALCIUM) [Concomitant]
  5. NOVOLOG [Concomitant]
  6. VALACYCLOVIR HCL [Concomitant]
  7. SULFAMETHOXAZOLE AND TRIMETHOPRIM [Concomitant]
  8. PRIMPERAN TAB [Concomitant]
  9. ALLOPURINOL [Concomitant]
  10. COVERSYL PLUS  (INDAPAMIDE, PERINDOPRIL ERBUMINE) [Concomitant]

REACTIONS (6)
  - CONFUSIONAL STATE [None]
  - CONSTIPATION [None]
  - DEHYDRATION [None]
  - DELUSION [None]
  - INSOMNIA [None]
  - PSYCHOTIC DISORDER [None]
